FAERS Safety Report 17907006 (Version 1)
Quarter: 2020Q2

REPORT INFORMATION
  Report Type: Spontaneous
  Country: US (occurrence: US)
  Receive Date: 20200617
  Receipt Date: 20200617
  Transmission Date: 20200714
  Serious: No
  Sender: FDA-Public Use
  Company Number: US-PFIZER INC-2019242799

PATIENT
  Age: 66 Year
  Sex: Female

DRUGS (2)
  1. ESTRING [Suspect]
     Active Substance: ESTRADIOL
     Indication: BREAST MASS
  2. ESTRING [Suspect]
     Active Substance: ESTRADIOL
     Indication: VAGINAL INFECTION
     Dosage: 1 DF, EVERY 3 MONTHS [(7.5 MCG/24 HOUR) RING/INSERT ONE RING PV]
     Route: 067
     Dates: start: 20190530

REACTIONS (1)
  - Weight increased [Unknown]
